FAERS Safety Report 9546477 (Version 2)
Quarter: 2013Q4

REPORT INFORMATION
  Report Type: Report from Study
  Country: CA (occurrence: CA)
  Receive Date: 20130923
  Receipt Date: 20131127
  Transmission Date: 20140711
  Serious: No
  Sender: FDA-Public Use
  Company Number: PHHY2013CA105369

PATIENT
  Age: 45 Year
  Sex: Female

DRUGS (6)
  1. GILENYA [Suspect]
     Indication: RELAPSING-REMITTING MULTIPLE SCLEROSIS
     Dosage: 0.5 MG, QD
     Route: 048
     Dates: start: 20130606, end: 20130719
  2. GILENYA [Suspect]
     Dosage: 0.5 MG, QD
     Route: 048
     Dates: start: 20130820
  3. CLONAZEPAM [Concomitant]
     Dosage: 1.5 DF, QID
  4. BACLOFEN [Concomitant]
     Dosage: 20 MG, QID
  5. GABAPENTIN [Concomitant]
     Dosage: 100 MG, TID
  6. ATIVAN [Concomitant]
     Dosage: 1 MG, PRN

REACTIONS (3)
  - Skin exfoliation [Recovered/Resolved]
  - Hirsutism [Unknown]
  - Alopecia [Unknown]
